FAERS Safety Report 4300020-1 (Version None)
Quarter: 2004Q1

REPORT INFORMATION
  Report Type: 
  Country: None (occurrence: None)
  Receive Date: 20040219
  Receipt Date: 20040219
  Transmission Date: 20041129
  Serious: Yes (Hospitalization)
  Sender: FDA-Public Use
  Company Number: None

PATIENT
  Age: 56 Year
  Sex: Male

DRUGS (7)
  1. CARBAMAZEPINE [Suspect]
     Dosage: 1 PO BID
     Route: 048
  2. AZITHROMYCIN [Concomitant]
  3. BUSPIRONE HCL [Concomitant]
  4. FLUOXETINE [Concomitant]
  5. GABAPENTIN [Concomitant]
  6. VENLAFAXINE HCL [Concomitant]
  7. RABEPRAZOLE SODIUM [Concomitant]

REACTIONS (7)
  - ALCOHOLISM [None]
  - CONFUSIONAL STATE [None]
  - DELIRIUM TREMENS [None]
  - DRUG LEVEL ABOVE THERAPEUTIC [None]
  - TACHYCARDIA [None]
  - TREMOR [None]
  - VOMITING [None]
